FAERS Safety Report 4737793-X (Version None)
Quarter: 2005Q3

REPORT INFORMATION
  Report Type: 
  Country: None (occurrence: None)
  Receive Date: 20050803
  Receipt Date: 20050721
  Transmission Date: 20060218
  Serious: Yes (Hospitalization)
  Sender: FDA-Public Use
  Company Number: 2005BI012447

PATIENT
  Age: 52 Year
  Sex: Female

DRUGS (8)
  1. AVONEX [Suspect]
     Indication: MULTIPLE SCLEROSIS
     Dosage: 30 UG; QW; IM
     Route: 030
     Dates: start: 19980201
  2. AVONEX [Suspect]
     Indication: MULTIPLE SCLEROSIS
     Dosage: 30 UG; QW; IM
     Route: 030
     Dates: start: 20030101
  3. PROZAC [Concomitant]
  4. LIPITOR [Concomitant]
  5. XANAX [Concomitant]
  6. PHENERGAN [Concomitant]
  7. ADVIL [Concomitant]
  8. MULTI-VITAMIN [Concomitant]

REACTIONS (1)
  - TIBIA FRACTURE [None]
